FAERS Safety Report 8909596 (Version 1)
Quarter: 2012Q4

REPORT INFORMATION
  Report Type: 
  Country: US (occurrence: US)
  Receive Date: 20121115
  Receipt Date: 20121115
  Transmission Date: 20130627
  Serious: Yes (Other)
  Sender: FDA-Public Use
  Company Number: US-BAYER-2012-116976

PATIENT
  Age: 40 Year
  Sex: Female

DRUGS (1)
  1. YAZ [Suspect]
     Indication: IRREGULAR PERIODS
     Dosage: UNK
     Dates: start: 20060910

REACTIONS (2)
  - Deep vein thrombosis [None]
  - Off label use [None]
